FAERS Safety Report 5634896-2 (Version None)
Quarter: 2008Q1

REPORT INFORMATION
  Report Type: 
  Country: None (occurrence: None)
  Receive Date: 20080221
  Receipt Date: 20080221
  Transmission Date: 20080703
  Serious: Yes (Other)
  Sender: FDA-Public Use
  Company Number: None

PATIENT
  Sex: Female
  Weight: 56.6996 kg

DRUGS (6)
  1. EFFEXOR XR [Suspect]
     Indication: ACUTE SINUSITIS
     Dosage: 37.5MG QD PO
     Route: 048
     Dates: start: 20080128, end: 20080202
  2. AUGMENTIN '200' [Suspect]
     Dosage: 2000MG BID PO
     Route: 048
  3. NASACORT [Concomitant]
  4. SINGULAIR [Concomitant]
  5. SYMBICORT [Concomitant]
  6. MUCINEX [Concomitant]

REACTIONS (4)
  - HALLUCINATION [None]
  - INSOMNIA [None]
  - MUSCLE RIGIDITY [None]
  - SEROTONIN SYNDROME [None]
